FAERS Safety Report 20750872 (Version 1)
Quarter: 2022Q2

REPORT INFORMATION
  Report Type: Spontaneous
  Country: US (occurrence: None)
  Receive Date: 20220426
  Receipt Date: 20220426
  Transmission Date: 20220721
  Serious: Yes (Other)
  Sender: FDA-Public Use
  Company Number: None

PATIENT
  Age: 61 Year
  Sex: Female
  Weight: 39.6 kg

DRUGS (1)
  1. EQUATE RESTORE PLUS LUBRICANT EYE DROPS [Suspect]
     Active Substance: CARBOXYMETHYLCELLULOSE SODIUM
     Indication: Eye lubrication therapy
     Dosage: OTHER QUANTITY : 1 DROP(S);?FREQUENCY : TWICE A DAY;?
     Route: 047
     Dates: start: 20220425, end: 20220425

REACTIONS (2)
  - Swelling face [None]
  - Eye swelling [None]

NARRATIVE: CASE EVENT DATE: 20220425
